FAERS Safety Report 19997123 (Version 1)
Quarter: 2021Q4

REPORT INFORMATION
  Report Type: Spontaneous
  Country: US (occurrence: US)
  Receive Date: 20211025
  Receipt Date: 20211025
  Transmission Date: 20220303
  Serious: No
  Sender: FDA-Public Use
  Company Number: 2021A744793

PATIENT
  Sex: Male
  Weight: 88.5 kg

DRUGS (8)
  1. TAGRISSO [Suspect]
     Active Substance: OSIMERTINIB
     Indication: Non-small cell lung cancer
     Route: 048
     Dates: start: 20210305
  2. REVLIMID [Concomitant]
     Active Substance: LENALIDOMIDE
  3. AMLODIPINE BESYLATE [Concomitant]
     Active Substance: AMLODIPINE BESYLATE
  4. ASPIRIN [Concomitant]
     Active Substance: ASPIRIN
  5. DEXAMETHASONE [Concomitant]
     Active Substance: DEXAMETHASONE
  6. METFORMIN [Concomitant]
     Active Substance: METFORMIN HYDROCHLORIDE
  7. ACYCLOVIR [Concomitant]
     Active Substance: ACYCLOVIR
  8. LISINOPRIL [Concomitant]
     Active Substance: LISINOPRIL

REACTIONS (6)
  - Oral infection [Unknown]
  - Tooth disorder [Unknown]
  - Gingival disorder [Unknown]
  - Neuralgia [Unknown]
  - Muscle spasms [Unknown]
  - Pain in extremity [Unknown]
